FAERS Safety Report 15587714 (Version 1)
Quarter: 2018Q4

REPORT INFORMATION
  Report Type: Spontaneous
  Country: US (occurrence: US)
  Receive Date: 20181105
  Receipt Date: 20181105
  Transmission Date: 20190205
  Serious: Yes (Other)
  Sender: FDA-Public Use
  Company Number: US-LUPIN HEALTHCARE (UK) LIMITED-2018-07638

PATIENT
  Sex: Female

DRUGS (1)
  1. LEVETIRACETAM TABLETS USP, 500 MG [Suspect]
     Active Substance: LEVETIRACETAM
     Indication: SEIZURE
     Dosage: 500 MG, QD
     Route: 048
     Dates: start: 20170202

REACTIONS (4)
  - Seizure [Not Recovered/Not Resolved]
  - Product dosage form issue [Unknown]
  - Drug ineffective [Unknown]
  - Agitation [Not Recovered/Not Resolved]
